FAERS Safety Report 7178319-3 (Version None)
Quarter: 2010Q4

REPORT INFORMATION
  Report Type: 
  Country: None (occurrence: None)
  Receive Date: 20101220
  Receipt Date: 20101207
  Transmission Date: 20110411
  Serious: Yes (Other)
  Sender: FDA-Public Use
  Company Number: FR-ELI_LILLY_AND_COMPANY-FR201012001498

PATIENT
  Sex: Female

DRUGS (5)
  1. PROZAC [Suspect]
     Dosage: UNK, UNK
     Route: 048
     Dates: end: 20090601
  2. NISISCO [Concomitant]
     Route: 048
     Dates: end: 20100324
  3. AMLODIPINE [Concomitant]
     Dates: start: 20100324
  4. XANAX [Concomitant]
     Route: 048
  5. ATARAX [Concomitant]
     Route: 048

REACTIONS (1)
  - PSEUDOLYMPHOMA [None]
